FAERS Safety Report 6503124-8 (Version None)
Quarter: 2009Q4

REPORT INFORMATION
  Report Type: 
  Country: None (occurrence: None)
  Receive Date: 20091201
  Receipt Date: 20090820
  Transmission Date: 20100525
  Serious: Yes (Hospitalization)
  Sender: FDA-Public Use
  Company Number: WAES 0908USA03748

PATIENT
  Age: 65 Year
  Sex: Female

DRUGS (3)
  1. INJ IVEMEND UNK [Suspect]
     Dosage: 1X/IV
     Route: 042
     Dates: start: 20090803, end: 20090803
  2. ALOXI [Concomitant]
  3. CYCLOPHOSPHAMIDE (+) DOXORUBICIN [Concomitant]

REACTIONS (2)
  - HYPERSENSITIVITY [None]
  - PYREXIA [None]
